FAERS Safety Report 8019752-7 (Version None)
Quarter: 2012Q1

REPORT INFORMATION
  Report Type: 
  Country: None (occurrence: None)
  Receive Date: 20120103
  Receipt Date: 20111227
  Transmission Date: 20120608
  Serious: Yes (Life-Threatening)
  Sender: FDA-Public Use
  Company Number: FR-GLAXOSMITHKLINE-B0771611A

PATIENT
  Sex: Female
  Weight: 47 kg

DRUGS (2)
  1. PAROXETINE HCL [Suspect]
     Indication: SUICIDE ATTEMPT
     Dosage: 2.8G SINGLE DOSE
     Route: 048
     Dates: start: 20020501, end: 20020501
  2. MOCLAMINE [Suspect]
     Indication: SUICIDE ATTEMPT
     Dosage: 4.5G SINGLE DOSE
     Route: 048
     Dates: start: 20020501, end: 20020501

REACTIONS (6)
  - RHABDOMYOLYSIS [None]
  - BRAIN OEDEMA [None]
  - HYPERTHERMIA MALIGNANT [None]
  - MYDRIASIS [None]
  - RENAL FAILURE ACUTE [None]
  - HEPATITIS FULMINANT [None]
